FAERS Safety Report 9935398 (Version 2)
Quarter: 2014Q2

REPORT INFORMATION
  Report Type: Spontaneous
  Country: US (occurrence: US)
  Receive Date: 20140228
  Receipt Date: 20140418
  Transmission Date: 20141212
  Serious: No
  Sender: FDA-Public Use
  Company Number: US-PFIZER INC-2014056985

PATIENT
  Age: 55 Year
  Sex: Male
  Weight: 95.24 kg

DRUGS (3)
  1. CELEBREX [Suspect]
     Indication: PSORIATIC ARTHROPATHY
     Dosage: 200 MG, 1X/DAY
  2. CELEBREX [Suspect]
     Dosage: 200 MG ONCE EVERY 3 TO 4 DAYS
     Dates: start: 201310
  3. NEXIUM [Concomitant]
     Indication: DYSPEPSIA
     Dosage: 40 MG, 1X/DAY

REACTIONS (4)
  - Intentional product misuse [Unknown]
  - Arthralgia [Unknown]
  - Neck pain [Unknown]
  - Pain in extremity [Unknown]
